FAERS Safety Report 17081544 (Version 1)
Quarter: 2019Q4

REPORT INFORMATION
  Report Type: Spontaneous
  Country: US (occurrence: US)
  Receive Date: 20191029
  Receipt Date: 20191029
  Transmission Date: 20200122
  Serious: Yes (Other)
  Sender: FDA-Public Use
  Company Number: None

PATIENT
  Age: 76 Year
  Sex: Female
  Weight: 77.11 kg

DRUGS (8)
  1. LISINOPRIL. [Suspect]
     Active Substance: LISINOPRIL
     Indication: HYPERTENSION
     Dosage: ?          QUANTITY:1 DF DOSAGE FORM;?
     Route: 048
     Dates: start: 20190612, end: 20190926
  2. HIGH OMEGA 3 MINIS EPA 600MG/DHA 500MG [Concomitant]
  3. AMLODIPINE BESYLATE. [Concomitant]
     Active Substance: AMLODIPINE BESYLATE
  4. MAGNESIUM [Concomitant]
     Active Substance: MAGNESIUM
  5. ATORVASTATIN [Concomitant]
     Active Substance: ATORVASTATIN
  6. MULTIVITAMIN [Suspect]
     Active Substance: VITAMINS
  7. VITAMIN B COMPLEX [Suspect]
     Active Substance: CYANOCOBALAMIN\DEXPANTHENOL\NIACINAMIDE\PYRIDOXINE HYDROCHLORIDE\RIBOFLAVIN 5^-PHOSPHATE SODIUM\THIAMINE HYDROCHLORIDE\VITAMIN B COMPLEX
  8. COQ10 [Concomitant]
     Active Substance: UBIDECARENONE

REACTIONS (4)
  - Dizziness [None]
  - Loss of consciousness [None]
  - Ventricular tachycardia [None]
  - Nausea [None]

NARRATIVE: CASE EVENT DATE: 20190926
